FAERS Safety Report 6436897-3 (Version None)
Quarter: 2009Q4

REPORT INFORMATION
  Report Type: 
  Country: None (occurrence: None)
  Receive Date: 20091109
  Receipt Date: 20091005
  Transmission Date: 20100525
  Serious: Yes (Life-Threatening, Hospitalization)
  Sender: FDA-Public Use
  Company Number: WAES 0806USA08291

PATIENT
  Age: 82 Year
  Sex: Male
  Weight: 107.9561 kg

DRUGS (17)
  1. CAP VORINOSTAT UNK [Suspect]
     Indication: ACUTE MYELOID LEUKAEMIA
     Dosage: 400 MG/DAILY/PO ; 400 MG/DAILY/PO
     Route: 048
     Dates: start: 20080504, end: 20080517
  2. CAP VORINOSTAT UNK [Suspect]
     Indication: ACUTE MYELOID LEUKAEMIA
     Dosage: 400 MG/DAILY/PO ; 400 MG/DAILY/PO
     Route: 048
     Dates: start: 20080614, end: 20080623
  3. CAP VORINOSTAT UNK [Suspect]
     Indication: ACUTE MYELOID LEUKAEMIA
     Dosage: 44 MG/IV ; 44 MG/IV
     Route: 042
     Dates: start: 20080429, end: 20080603
  4. CAP VORINOSTAT UNK [Suspect]
     Indication: ACUTE MYELOID LEUKAEMIA
     Dosage: 44 MG/IV ; 44 MG/IV
     Route: 042
     Dates: start: 20080609, end: 20080613
  5. LOVENOX [Concomitant]
  6. ACYCLOVIR [Concomitant]
  7. AMLODIPINE [Concomitant]
  8. ITRACONAZOLE [Concomitant]
  9. LEVOFLOXACIN [Concomitant]
  10. METRONIDAZOLE [Concomitant]
  11. NYSTATIN [Concomitant]
  12. PANTOPRAZOLE SODIUM [Concomitant]
  13. POTASSIUM CHLORIDE (+) SODIUM CH [Concomitant]
  14. SODIUM BICARBONATE (+) SODIUM CH [Concomitant]
  15. SODIUM CHLORIDE [Concomitant]
  16. VITAMINS (UNSPECIFIED) [Concomitant]
  17. WARFARIN SODIUM [Concomitant]

REACTIONS (17)
  - ABDOMINAL RIGIDITY [None]
  - BRONCHOPULMONARY ASPERGILLOSIS [None]
  - CLOSTRIDIAL INFECTION [None]
  - DIARRHOEA [None]
  - ESCHERICHIA BACTERAEMIA [None]
  - FEBRILE NEUTROPENIA [None]
  - GENERAL SYMPTOM [None]
  - HYPERHIDROSIS [None]
  - LYMPHADENOPATHY [None]
  - NAUSEA [None]
  - ODYNOPHAGIA [None]
  - OROPHARYNGEAL PAIN [None]
  - PLEURAL RUB [None]
  - RETCHING [None]
  - TACHYCARDIA [None]
  - THROMBOCYTOPENIA [None]
  - WHITE BLOOD CELL COUNT DECREASED [None]
